FAERS Safety Report 4394910-1 (Version None)
Quarter: 2004Q3

REPORT INFORMATION
  Report Type: 
  Country: None (occurrence: None)
  Receive Date: 20040712
  Receipt Date: 20040312
  Transmission Date: 20050211
  Serious: Yes (Other)
  Sender: FDA-Public Use
  Company Number: US-GLAXOSMITHKLINE-A0502598A

PATIENT
  Age: 33 Year
  Sex: Female

DRUGS (2)
  1. PAXIL CR [Suspect]
     Indication: ILL-DEFINED DISORDER
     Dosage: 25MG PER DAY
     Route: 048
  2. TRAMADOL [Suspect]
     Indication: BACK PAIN
     Route: 065

REACTIONS (5)
  - BALANCE DISORDER [None]
  - DIZZINESS [None]
  - FEELING ABNORMAL [None]
  - GRAND MAL CONVULSION [None]
  - POSTICTAL STATE [None]
